FAERS Safety Report 13295047 (Version 1)
Quarter: 2017Q1

REPORT INFORMATION
  Report Type: Spontaneous
  Country: US (occurrence: US)
  Receive Date: 20170303
  Receipt Date: 20170303
  Transmission Date: 20170428
  Serious: Yes (Death, Hospitalization)
  Sender: FDA-Public Use
  Company Number: US-JNJFOC-20170218482

PATIENT
  Sex: Female
  Weight: 170 kg

DRUGS (4)
  1. XARELTO [Suspect]
     Active Substance: RIVAROXABAN
     Indication: DRUG PRESCRIBING ERROR
     Route: 048
  2. XARELTO [Suspect]
     Active Substance: RIVAROXABAN
     Indication: DRUG PRESCRIBING ERROR
     Route: 048
     Dates: start: 20141231, end: 201502
  3. XARELTO [Suspect]
     Active Substance: RIVAROXABAN
     Indication: COAGULATION TIME
     Route: 048
     Dates: start: 20141231, end: 201502
  4. XARELTO [Suspect]
     Active Substance: RIVAROXABAN
     Indication: COAGULATION TIME
     Route: 048

REACTIONS (1)
  - Haemorrhage [Fatal]

NARRATIVE: CASE EVENT DATE: 20150701
